FAERS Safety Report 10930369 (Version 1)
Quarter: 2015Q1

REPORT INFORMATION
  Report Type: Report from Study
  Country: AR (occurrence: AR)
  Receive Date: 20150319
  Receipt Date: 20150319
  Transmission Date: 20150721
  Serious: Yes (Disabling, Other)
  Sender: FDA-Public Use
  Company Number: AR-ABBVIE-15P-007-1361944-00

PATIENT
  Age: 58 Year
  Sex: Female

DRUGS (1)
  1. ZEMPLAR [Suspect]
     Active Substance: PARICALCITOL
     Indication: HYPERPARATHYROIDISM SECONDARY
     Route: 042
     Dates: start: 20140301

REACTIONS (2)
  - Leg amputation [Recovered/Resolved with Sequelae]
  - Infection [Unknown]

NARRATIVE: CASE EVENT DATE: 20150217
